FAERS Safety Report 7024160-1 (Version None)
Quarter: 2010Q4

REPORT INFORMATION
  Report Type: 
  Country: None (occurrence: None)
  Receive Date: 20101001
  Receipt Date: 20100921
  Transmission Date: 20110411
  Serious: Yes (Disabling, Other)
  Sender: FDA-Public Use
  Company Number: NL-ROCHE-729204

PATIENT
  Sex: Male

DRUGS (3)
  1. PEGASYS [Suspect]
     Indication: PRODUCT USED FOR UNKNOWN INDICATION
     Route: 058
     Dates: start: 20100910
  2. PEGASYS [Suspect]
     Dosage: PERMANENTLY DISCONTINUED ON SEP 2010
     Route: 058
     Dates: start: 20100917
  3. COPEGUS [Suspect]
     Indication: PRODUCT USED FOR UNKNOWN INDICATION
     Dosage: PERMANENTLY DISCONTINUED.
     Route: 048
     Dates: start: 20100910, end: 20100901

REACTIONS (4)
  - DACRYOSTENOSIS ACQUIRED [None]
  - LACRIMATION INCREASED [None]
  - SPEECH DISORDER [None]
  - VIITH NERVE PARALYSIS [None]
